FAERS Safety Report 18708751 (Version 4)
Quarter: 2021Q2

REPORT INFORMATION
  Report Type: Spontaneous
  Country: US (occurrence: US)
  Receive Date: 20210106
  Receipt Date: 20210521
  Transmission Date: 20210717
  Serious: Yes (Other)
  Sender: FDA-Public Use
  Company Number: US-PFIZER INC-2020520488

PATIENT
  Age: 62 Year
  Sex: Female
  Weight: 54.43 kg

DRUGS (3)
  1. ESTRING [Suspect]
     Active Substance: ESTRADIOL
     Indication: DYSPAREUNIA
  2. ESTRING [Suspect]
     Active Substance: ESTRADIOL
     Indication: VULVOVAGINAL DRYNESS
     Dosage: UNK UNK, EVERY 3 MONTHS
     Route: 067
     Dates: start: 20200810
  3. ESTRING [Suspect]
     Active Substance: ESTRADIOL
     Indication: MENOPAUSAL SYMPTOMS
     Dosage: UNK UNK, EVERY 3 MONTHS
     Route: 067
     Dates: start: 20200806, end: 20201230

REACTIONS (7)
  - Device issue [Not Recovered/Not Resolved]
  - Vulvovaginal pruritus [Not Recovered/Not Resolved]
  - Vulvovaginal discomfort [Not Recovered/Not Resolved]
  - Condition aggravated [Unknown]
  - Bacterial vulvovaginitis [Unknown]
  - Vulvovaginal burning sensation [Recovering/Resolving]
  - Vaginal discharge [Recovering/Resolving]

NARRATIVE: CASE EVENT DATE: 20201125
